FAERS Safety Report 4296909-2 (Version None)
Quarter: 2004Q1

REPORT INFORMATION
  Report Type: 
  Country: None (occurrence: None)
  Receive Date: 20040126
  Receipt Date: 20030917
  Transmission Date: 20041129
  Serious: No
  Sender: FDA-Public Use
  Company Number: USA030227680

PATIENT
  Age: 8 Year
  Sex: Male
  Weight: 22 kg

DRUGS (2)
  1. STRATTERA [Suspect]
     Indication: ATTENTION DEFICIT/HYPERACTIVITY DISORDER
     Dosage: 36 MG/DAY
     Dates: start: 20030123
  2. MULTI-VITAMIN [Concomitant]

REACTIONS (6)
  - ABNORMAL BEHAVIOUR [None]
  - AGGRESSION [None]
  - DISTURBANCE IN ATTENTION [None]
  - EYE SWELLING [None]
  - MOOD SWINGS [None]
  - WEIGHT DECREASED [None]
